FAERS Safety Report 18285393 (Version 2)
Quarter: 2020Q4

REPORT INFORMATION
  Report Type: Spontaneous
  Country: LK (occurrence: LK)
  Receive Date: 20200918
  Receipt Date: 20201001
  Transmission Date: 20210113
  Serious: Yes (Hospitalization)
  Sender: FDA-Public Use
  Company Number: LK-BAYER-2020-198924

PATIENT
  Age: 52 Year
  Sex: Female

DRUGS (1)
  1. IOPROMIDE. [Suspect]
     Active Substance: IOPROMIDE

REACTIONS (1)
  - Contrast encephalopathy [Recovered/Resolved]

NARRATIVE: CASE EVENT DATE: 201808
